FAERS Safety Report 11987881 (Version 2)
Quarter: 2016Q1

REPORT INFORMATION
  Report Type: Spontaneous
  Country: GB (occurrence: GB)
  Receive Date: 20160202
  Receipt Date: 20160309
  Transmission Date: 20160526
  Serious: Yes (Other)
  Sender: FDA-Public Use
  Company Number: GB-AMGEN-GBRSP2015139285

PATIENT
  Age: 48 Year
  Sex: Male

DRUGS (1)
  1. ENBREL [Suspect]
     Active Substance: ETANERCEPT
     Indication: RHEUMATOID ARTHRITIS
     Dosage: 50 MG, WEEKLY
     Route: 065
     Dates: start: 20151113, end: 2016

REACTIONS (9)
  - Infection [Unknown]
  - Depressed mood [Unknown]
  - Nasopharyngitis [Unknown]
  - Fatigue [Unknown]
  - Drug ineffective [Unknown]
  - Lower respiratory tract infection [Not Recovered/Not Resolved]
  - Cough [Unknown]
  - Nausea [Unknown]
  - Malaise [Unknown]

NARRATIVE: CASE EVENT DATE: 201512
